FAERS Safety Report 16403679 (Version 1)
Quarter: 2019Q2

REPORT INFORMATION
  Report Type: Spontaneous
  Country: GB (occurrence: GB)
  Receive Date: 20190607
  Receipt Date: 20190607
  Transmission Date: 20190711
  Serious: Yes (Other)
  Sender: FDA-Public Use
  Company Number: GB-ACCORD-131587

PATIENT
  Age: 62 Year
  Sex: Female
  Weight: 59.6 kg

DRUGS (16)
  1. LORAZEPAM. [Concomitant]
     Active Substance: LORAZEPAM
  2. NICORETTE [Concomitant]
     Active Substance: NICOTINE
     Route: 055
  3. SALMETEROL [Concomitant]
     Active Substance: SALMETEROL
  4. ZUCLOPENTHIXOL [Concomitant]
     Active Substance: ZUCLOPENTHIXOL
  5. COLECALCIFEROL [Concomitant]
     Active Substance: CHOLECALCIFEROL
  6. CHLORHEXIDINE [Concomitant]
     Active Substance: CHLORHEXIDINE
  7. CODEINE [Concomitant]
     Active Substance: CODEINE
  8. LAMOTRIGINE. [Concomitant]
     Active Substance: LAMOTRIGINE
  9. NICORETTE QUICKMIST [Concomitant]
     Active Substance: NICOTINE
  10. DOCUSATE [Concomitant]
     Active Substance: DOCUSATE
  11. QUETIAPINE. [Suspect]
     Active Substance: QUETIAPINE
     Indication: SCHIZOAFFECTIVE DISORDER
     Route: 048
     Dates: start: 20190306, end: 20190328
  12. ZUCLOPENTHIXOL [Concomitant]
     Active Substance: ZUCLOPENTHIXOL
  13. CLENIL MODULITE [Concomitant]
     Active Substance: BECLOMETHASONE DIPROPIONATE
  14. SENNA ALEXANDRINA [Concomitant]
     Active Substance: SENNA LEAF
  15. OXYBUTYNIN. [Concomitant]
     Active Substance: OXYBUTYNIN CHLORIDE
  16. PARACETAMOL [Concomitant]
     Active Substance: ACETAMINOPHEN

REACTIONS (4)
  - Dysarthria [Recovered/Resolved]
  - Derealisation [Recovered/Resolved]
  - Dysmetropsia [Recovered/Resolved]
  - Gait disturbance [Recovered/Resolved]

NARRATIVE: CASE EVENT DATE: 20190306
